FAERS Safety Report 11225550 (Version 1)
Quarter: 2015Q2

REPORT INFORMATION
  Report Type: Spontaneous
  Country: US (occurrence: None)
  Receive Date: 20150626
  Receipt Date: 20150626
  Transmission Date: 20150821
  Serious: Yes (Other)
  Sender: FDA-Public Use
  Company Number: None

PATIENT
  Age: 64 Year
  Sex: Male
  Weight: 80.74 kg

DRUGS (2)
  1. SODIUM CHLORIDE OPTHALMIC OINTMENT 5% [Suspect]
     Active Substance: SODIUM CHLORIDE
     Indication: CORNEAL EROSION
     Dates: start: 2012
  2. SODIUM CHLORIDE OPTHALMIC OINTMENT 5% [Suspect]
     Active Substance: SODIUM CHLORIDE
     Dates: start: 2012

REACTIONS (3)
  - Ocular discomfort [None]
  - Product quality issue [None]
  - Vision blurred [None]

NARRATIVE: CASE EVENT DATE: 20150516
